FAERS Safety Report 5731640-5 (Version None)
Quarter: 2008Q2

REPORT INFORMATION
  Report Type: 
  Country: None (occurrence: None)
  Receive Date: 20080506
  Receipt Date: 20080421
  Transmission Date: 20081010
  Serious: Yes (Death)
  Sender: FDA-Public Use
  Company Number: TRP_05625_2008

PATIENT
  Age: 66 Year
  Sex: Male

DRUGS (2)
  1. RIBASPHERE [Suspect]
     Indication: HEPATITIS C
     Dosage: 600 MG BID ORAL
     Route: 048
     Dates: start: 20080123, end: 20080315
  2. PEG-INTRON [Suspect]
     Indication: HEPATITIS C
     Dosage: 150 MCG /0.5 ML SUBCUTANEOUS)
     Route: 058
     Dates: start: 20080123, end: 20080315

REACTIONS (4)
  - CONVULSION [None]
  - GASTRIC DISORDER [None]
  - HYPOTENSION [None]
  - MYOCARDIAL INFARCTION [None]
